FAERS Safety Report 7982347-5 (Version None)
Quarter: 2011Q4

REPORT INFORMATION
  Report Type: 
  Country: None (occurrence: None)
  Receive Date: 20111215
  Receipt Date: 20111201
  Transmission Date: 20120403
  Serious: Yes (Hospitalization, Other)
  Sender: FDA-Public Use
  Company Number: PHHY2011NL104285

PATIENT
  Sex: Female
  Weight: 48 kg

DRUGS (10)
  1. ACENOCOUMAROL [Concomitant]
  2. SELOKEEN [Concomitant]
     Dosage: 75 MG, QD
  3. FUROSEMIDE [Concomitant]
     Dosage: 20 MG, QD
  4. TASIGNA [Suspect]
     Indication: CHRONIC MYELOID LEUKAEMIA
     Dosage: 400 MG, BID
     Route: 048
     Dates: start: 20080101
  5. KEPPRA [Concomitant]
     Dosage: 750 MG, BID
  6. LANOXIN [Concomitant]
     Dosage: 0.062 UG, UNK
  7. SIMVASTATIN [Concomitant]
     Dosage: 40 MG, QD
  8. OMEPRAZOLE [Concomitant]
     Dosage: 40 MG, QD
  9. LISINOPRIL [Concomitant]
     Dosage: 5 MG, QD
  10. FRAXIPARINE [Concomitant]

REACTIONS (14)
  - PARESIS [None]
  - SUPRAVENTRICULAR TACHYCARDIA [None]
  - PERIPHERAL VASCULAR DISORDER [None]
  - FEMORAL ARTERIAL STENOSIS [None]
  - INGROWING NAIL [None]
  - MUSCLE HAEMORRHAGE [None]
  - PLEURAL DISORDER [None]
  - ANAEMIA [None]
  - PYRAMIDAL TRACT SYNDROME [None]
  - ATRIAL TACHYCARDIA [None]
  - NECROSIS [None]
  - NEUROPATHY PERIPHERAL [None]
  - PERIPHERAL ARTERIAL OCCLUSIVE DISEASE [None]
  - INTERMITTENT CLAUDICATION [None]
